FAERS Safety Report 11826755 (Version 1)
Quarter: 2015Q4

REPORT INFORMATION
  Report Type: Other
  Country: ES (occurrence: ES)
  Receive Date: 20151211
  Receipt Date: 20151211
  Transmission Date: 20160305
  Serious: Yes (Other)
  Sender: FDA-Public Use
  Company Number: ES-WARNER CHILCOTT, LLC-1045370

PATIENT
  Age: 65 Year
  Sex: Female

DRUGS (1)
  1. ACTONEL [Suspect]
     Active Substance: RISEDRONATE SODIUM
     Route: 048

REACTIONS (8)
  - Myalgia [Unknown]
  - Pyrexia [Unknown]
  - Episcleritis [Unknown]
  - Uveitis [Unknown]
  - Gastrointestinal haemorrhage [Unknown]
  - Influenza [Unknown]
  - Conjunctivitis [Unknown]
  - Arthralgia [Unknown]
